FAERS Safety Report 10997024 (Version 1)
Quarter: 2015Q2

REPORT INFORMATION
  Report Type: Spontaneous
  Country: US (occurrence: None)
  Receive Date: 20150407
  Receipt Date: 20150407
  Transmission Date: 20150821
  Serious: Yes (Hospitalization)
  Sender: FDA-Public Use
  Company Number: None

PATIENT
  Age: 81 Year
  Sex: Male
  Weight: 65.77 kg

DRUGS (2)
  1. ZOLOFT [Suspect]
     Active Substance: SERTRALINE HYDROCHLORIDE
     Dosage: TAKEN BY MOUTH ( 1 PILL)
     Dates: start: 20150316
  2. CENTRUM VITAMINS [Concomitant]

REACTIONS (2)
  - Delusion [None]
  - Dementia [None]

NARRATIVE: CASE EVENT DATE: 20150402
